FAERS Safety Report 11718226 (Version 1)
Quarter: 2015Q4

REPORT INFORMATION
  Report Type: Spontaneous
  Country: US (occurrence: None)
  Receive Date: 20151109
  Receipt Date: 20151109
  Transmission Date: 20160304
  Serious: Yes (Hospitalization, Disabling, Other)
  Sender: FDA-Public Use
  Company Number: None

PATIENT
  Age: 51 Year
  Sex: Female
  Weight: 65.32 kg

DRUGS (15)
  1. ZPFRAM [Concomitant]
  2. LYRICA [Concomitant]
     Active Substance: PREGABALIN
  3. FOLATE [Concomitant]
     Active Substance: FOLATE SODIUM
  4. BRILINTA [Suspect]
     Active Substance: TICAGRELOR
     Indication: MYOCARDIAL INFARCTION
     Route: 048
     Dates: start: 20140404, end: 20140406
  5. PRONTONIX [Concomitant]
  6. FISH OIL [Concomitant]
     Active Substance: FISH OIL
  7. ASA [Concomitant]
     Active Substance: ASPIRIN
  8. CYMBALTA [Concomitant]
     Active Substance: DULOXETINE HYDROCHLORIDE
  9. VITAMIN B12 [Concomitant]
     Active Substance: CYANOCOBALAMIN
  10. KYO-DOPHILUS [Concomitant]
  11. ATORVASTATIN [Concomitant]
     Active Substance: ATORVASTATIN
  12. TRAMADOL. [Concomitant]
     Active Substance: TRAMADOL
  13. MULTIVITAMIN WOMEN^S 50+ [Concomitant]
  14. DOMPERIDONE [Concomitant]
     Active Substance: DOMPERIDONE
  15. LINZESS [Concomitant]
     Active Substance: LINACLOTIDE

REACTIONS (4)
  - Activities of daily living impaired [None]
  - Memory impairment [None]
  - Confusional state [None]
  - Cerebral haemorrhage [None]

NARRATIVE: CASE EVENT DATE: 20140505
